FAERS Safety Report 5288167-7 (Version None)
Quarter: 2007Q2

REPORT INFORMATION
  Report Type: 
  Country: None (occurrence: None)
  Receive Date: 20070405
  Receipt Date: 20070328
  Transmission Date: 20071010
  Serious: Yes (Other)
  Sender: FDA-Public Use
  Company Number: DE-JNJFOC-20070104320

PATIENT
  Sex: Male
  Weight: 70 kg

DRUGS (7)
  1. REMINYL [Suspect]
     Indication: CEREBRAL ARTERIOSCLEROSIS
     Dosage: AT NIGHT
     Route: 048
  2. ACTRAPHANE 30 [Concomitant]
     Dosage: AT NIGHT AS NEEDED
     Route: 050
  3. ACTRAPHANE 30 [Concomitant]
     Indication: DIABETES MELLITUS INSULIN-DEPENDENT
     Dosage: 20 IU/ML IN THE MORNING
     Route: 050
  4. ASPIRIN [Concomitant]
     Route: 048
  5. LISIDOC [Concomitant]
     Route: 048
  6. CONCOR [Concomitant]
     Dosage: 1 1/2 TABLETS
     Route: 048
  7. FUROSEMIDE [Concomitant]
     Route: 048

REACTIONS (1)
  - BLOOD GLUCOSE INCREASED [None]
